FAERS Safety Report 9733327 (Version 1)
Quarter: 2013Q4

REPORT INFORMATION
  Report Type: Spontaneous
  Country: NL (occurrence: NL)
  Receive Date: 20131205
  Receipt Date: 20131205
  Transmission Date: 20140711
  Serious: Yes (Hospitalization)
  Sender: FDA-Public Use
  Company Number: NL-ASTELLAS-2013EU010833

PATIENT
  Age: 11 Year
  Sex: Female

DRUGS (2)
  1. TACROLIMUS OINTMENT [Suspect]
     Indication: CUTANEOUS LUPUS ERYTHEMATOSUS
     Dosage: UNK
     Route: 061
  2. HYDROCORTISONE [Concomitant]
     Indication: CUTANEOUS LUPUS ERYTHEMATOSUS
     Dosage: UNK
     Route: 065

REACTIONS (3)
  - Off label use [Unknown]
  - Staphylococcal bacteraemia [Recovered/Resolved]
  - Osteomyelitis [Recovered/Resolved]
